FAERS Safety Report 8435821-1 (Version None)
Quarter: 2012Q2

REPORT INFORMATION
  Report Type: 
  Country: None (occurrence: None)
  Receive Date: 20120614
  Receipt Date: 20120604
  Transmission Date: 20120825
  Serious: Yes (Hospitalization)
  Sender: FDA-Public Use
  Company Number: JP-EISAI INC-E7389-02545-CLI-JP

PATIENT
  Sex: Female
  Weight: 64 kg

DRUGS (4)
  1. EPIRUBICIN HYDROCHLORIDE [Suspect]
     Indication: SARCOMA
     Dosage: UNKNOWN
     Route: 041
     Dates: start: 20120213, end: 20120529
  2. WARFARIN SODIUM [Suspect]
     Route: 048
     Dates: start: 20111129, end: 20120601
  3. ALPRAZOLAM [Concomitant]
     Route: 048
     Dates: start: 20120110
  4. RHYTHMY [Concomitant]
     Route: 048
     Dates: start: 20120112

REACTIONS (1)
  - HEPATIC HAEMORRHAGE [None]
